FAERS Safety Report 5477174-7 (Version None)
Quarter: 2007Q4

REPORT INFORMATION
  Report Type: 
  Country: None (occurrence: None)
  Receive Date: 20071004
  Receipt Date: 20070928
  Transmission Date: 20080405
  Serious: Yes (Hospitalization)
  Sender: FDA-Public Use
  Company Number: A0685031A

PATIENT
  Sex: Male

DRUGS (10)
  1. ADVAIR DISKUS 100/50 [Suspect]
     Indication: ASTHMA
     Dosage: 1PUFF PER DAY
     Route: 055
  2. COREG [Suspect]
     Indication: DRUG USE FOR UNKNOWN INDICATION
     Dosage: 6.25MG TWICE PER DAY
     Route: 048
  3. COREG CR [Suspect]
     Indication: DRUG USE FOR UNKNOWN INDICATION
     Dosage: 20MG PER DAY
     Route: 048
  4. BETA-BLOCKER [Concomitant]
  5. SINGULAIR [Concomitant]
  6. ADVAIR DISKUS 100/50 [Concomitant]
  7. DIGOXIN [Concomitant]
  8. COUMADIN [Concomitant]
  9. UNKNOWN MEDICATION [Concomitant]
  10. UNKNOWN MEDICATION [Concomitant]

REACTIONS (4)
  - CARDIAC DISORDER [None]
  - DYSPNOEA [None]
  - LUNG DISORDER [None]
  - WHEEZING [None]
